FAERS Safety Report 8424340-4 (Version None)
Quarter: 2012Q2

REPORT INFORMATION
  Report Type: 
  Country: None (occurrence: None)
  Receive Date: 20120608
  Receipt Date: 20110926
  Transmission Date: 20120825
  Serious: No
  Sender: FDA-Public Use
  Company Number: US-ASTRAZENECA-2011SE57774

PATIENT
  Age: 84 Year
  Sex: Male
  Weight: 70.3 kg

DRUGS (1)
  1. PULMICORT FLEXHALER [Suspect]
     Indication: CHRONIC OBSTRUCTIVE PULMONARY DISEASE
     Dosage: TOTAL DIALY DOSAGE 90 MCG, TWO TIMES A DAY
     Route: 055

REACTIONS (2)
  - OFF LABEL USE [None]
  - DRUG EFFECT DECREASED [None]
